FAERS Safety Report 4967309-4 (Version None)
Quarter: 2006Q2

REPORT INFORMATION
  Report Type: 
  Country: None (occurrence: None)
  Receive Date: 20060410
  Receipt Date: 20060327
  Transmission Date: 20061013
  Serious: Yes (Death)
  Sender: FDA-Public Use
  Company Number: AU-JNJFOC-20060306724

PATIENT
  Age: 77 Year
  Sex: Male

DRUGS (1)
  1. CLADRIBINE [Suspect]

REACTIONS (3)
  - DIFFUSE LARGE B-CELL LYMPHOMA [None]
  - LISTERIOSIS [None]
  - TUBERCULOSIS [None]
